FAERS Safety Report 7424515-7 (Version None)
Quarter: 2011Q2

REPORT INFORMATION
  Report Type: 
  Country: None (occurrence: None)
  Receive Date: 20110411
  Receipt Date: 20110324
  Transmission Date: 20111010
  Serious: Yes (Other)
  Sender: FDA-Public Use
  Company Number: 2009S1000471

PATIENT
  Age: 66 Year
  Sex: Female
  Weight: 62.1428 kg

DRUGS (8)
  1. PHOSPHOSODA FLAVOR NOT SPECIFIED [Suspect]
     Indication: COLONOSCOPY
     Dosage: 75 ML;TOTAL;PO
     Route: 048
     Dates: start: 20060727, end: 20060728
  2. NEXIUM [Concomitant]
  3. NORVASC [Concomitant]
  4. BENAZEPRIL W/HYDROCHLOROTHIAZIDE [Concomitant]
  5. FERROUS SULFATE TAB [Concomitant]
  6. PHENERGAN /00033001/ [Suspect]
     Indication: COLONOSCOPY
     Dosage: X1;PO
     Route: 048
     Dates: start: 20060727, end: 20060727
  7. CIPROFLOXACIN [Concomitant]
  8. OMEPRAZOLE [Concomitant]

REACTIONS (5)
  - RENAL FAILURE ACUTE [None]
  - NEPHROSCLEROSIS [None]
  - ACUTE PHOSPHATE NEPHROPATHY [None]
  - RENAL FAILURE CHRONIC [None]
  - TUBULOINTERSTITIAL NEPHRITIS [None]
